FAERS Safety Report 10029578 (Version 1)
Quarter: 2014Q1

REPORT INFORMATION
  Report Type: Spontaneous
  Country: IT (occurrence: None)
  Receive Date: 20140320
  Receipt Date: 20140320
  Transmission Date: 20141002
  Serious: Yes (Hospitalization)
  Sender: FDA-Public Use
  Company Number: None

PATIENT
  Age: 52 Year
  Sex: Female
  Weight: 47 kg

DRUGS (4)
  1. XANAX [Suspect]
     Indication: BLADDER PAIN
     Dosage: 1 PILL  ONCE DAILY  TAKEN BY MOUTH
     Route: 048
     Dates: start: 20130819, end: 20130826
  2. XANAX [Suspect]
     Indication: CYSTITIS NONINFECTIVE
     Dosage: 1 PILL  ONCE DAILY  TAKEN BY MOUTH
     Route: 048
     Dates: start: 20130819, end: 20130826
  3. XANAX [Suspect]
     Indication: INSOMNIA
     Dosage: 1 PILL  ONCE DAILY  TAKEN BY MOUTH
     Route: 048
     Dates: start: 20130819, end: 20130826
  4. XANAX [Suspect]
     Indication: ANXIETY
     Dosage: 1 PILL  ONCE DAILY  TAKEN BY MOUTH
     Route: 048
     Dates: start: 20130819, end: 20130826

REACTIONS (9)
  - Mental disorder [None]
  - Treatment failure [None]
  - Insomnia [None]
  - Anxiety [None]
  - Drug withdrawal syndrome [None]
  - Paraesthesia [None]
  - Paraesthesia [None]
  - Paraesthesia [None]
  - Hypoaesthesia [None]
